FAERS Safety Report 5911019-3 (Version None)
Quarter: 2008Q4

REPORT INFORMATION
  Report Type: 
  Country: None (occurrence: None)
  Receive Date: 20081007
  Receipt Date: 20080930
  Transmission Date: 20090506
  Serious: Yes (Hospitalization)
  Sender: FDA-Public Use
  Company Number: FR-GENENTECH-264953

PATIENT
  Sex: Male
  Weight: 74 kg

DRUGS (11)
  1. RSHAPO2L-TRAIL [Suspect]
     Indication: NON-HODGKIN'S LYMPHOMA
     Dosage: 592 MG, UNK
     Route: 042
     Dates: start: 20080428
  2. RITUXIMAB [Suspect]
     Indication: NON-HODGKIN'S LYMPHOMA
     Dosage: 675 MG, UNK
     Route: 042
     Dates: start: 20080425
  3. ADANCOR [Concomitant]
     Indication: ANGER
     Dosage: UNK
     Dates: start: 20040101
  4. VASTAREL [Concomitant]
     Indication: ANGER
     Dosage: UNK
     Dates: start: 20040101
  5. METFORMIN HCL [Concomitant]
     Indication: DIABETES MELLITUS
     Dosage: UNK
     Dates: start: 20000101
  6. COVERSYL [Concomitant]
     Indication: CARDIAC DISORDER
     Dosage: UNK
     Dates: start: 20080418
  7. GENTALLINE [Concomitant]
     Indication: COUGH
     Dosage: UNK
     Dates: start: 20080430, end: 20080504
  8. PULMICORT-100 [Concomitant]
     Indication: COUGH
     Dosage: UNK
     Dates: start: 20080430, end: 20080504
  9. LOVENOX [Concomitant]
     Indication: DRUG USE FOR UNKNOWN INDICATION
     Dosage: UNK
     Dates: start: 20080719
  10. ROCEPHIN [Concomitant]
     Indication: PYREXIA
     Dosage: UNK
     Dates: start: 20080719
  11. ATACAND [Concomitant]
     Indication: CARDIAC DISORDER
     Dosage: UNK
     Dates: start: 20080719

REACTIONS (1)
  - CONSTIPATION [None]
